FAERS Safety Report 6280594-4 (Version None)
Quarter: 2009Q3

REPORT INFORMATION
  Report Type: 
  Country: None (occurrence: None)
  Receive Date: 20090724
  Receipt Date: 20080918
  Transmission Date: 20100115
  Serious: No
  Sender: FDA-Public Use
  Company Number: A0748394A

PATIENT
  Age: 54 Year
  Sex: Male

DRUGS (8)
  1. AVANDIA [Suspect]
     Dosage: 6MG PER DAY
     Route: 048
  2. SEROQUEL [Concomitant]
  3. XANAX [Concomitant]
  4. LEVOTHROID [Concomitant]
  5. NORVASC [Concomitant]
  6. TRICOR [Concomitant]
  7. METHADONE HCL [Concomitant]
  8. HYTRIN [Concomitant]

REACTIONS (1)
  - CARDIOVASCULAR DISORDER [None]
